FAERS Safety Report 25362936 (Version 4)
Quarter: 2025Q3

REPORT INFORMATION
  Report Type: Report from Study
  Country: US (occurrence: US)
  Receive Date: 20250527
  Receipt Date: 20250701
  Transmission Date: 20251021
  Serious: Yes (Other)
  Sender: MYLAN
  Company Number: US-MYLANLABS-2025M1039063

PATIENT
  Sex: Female

DRUGS (15)
  1. ATORVASTATIN CALCIUM [Suspect]
     Active Substance: ATORVASTATIN CALCIUM
     Indication: Product used for unknown indication
     Dosage: 40 MILLIGRAM, QD (DAILY)
  2. VYNDAMAX [Suspect]
     Active Substance: TAFAMIDIS
     Indication: Product used for unknown indication
     Dosage: 61 MILLIGRAM, QD (TAKE 1 CAPSULE BY MOUTH EVERY DAY)
     Dates: start: 20240917, end: 202503
  3. VYNDAQEL [Suspect]
     Active Substance: TAFAMIDIS MEGLUMINE
     Indication: Product used for unknown indication
     Dosage: 80 MILLIGRAM, QD (TAKE 4 CAPSULES BY MOUTH ONCE A DAY)
     Dates: start: 20250315
  4. ASPIRIN [Concomitant]
     Active Substance: ASPIRIN
  5. CELECOXIB [Concomitant]
     Active Substance: CELECOXIB
  6. CYCLOBENZAPRINE [Concomitant]
     Active Substance: CYCLOBENZAPRINE
  7. FUROSEMIDE [Concomitant]
     Active Substance: FUROSEMIDE
  8. PANTOPRAZOLE [Concomitant]
     Active Substance: PANTOPRAZOLE
  9. SIMVASTATIN [Concomitant]
     Active Substance: SIMVASTATIN
  10. VITAMIN C [Concomitant]
     Active Substance: ASCORBIC ACID
  11. VITAMIN D [Concomitant]
     Active Substance: VITAMIN D NOS
  12. VITAMIN D3 [Concomitant]
     Active Substance: CHOLECALCIFEROL
  13. ASPIRIN [Concomitant]
     Active Substance: ASPIRIN
  14. CALCIUM [Concomitant]
     Active Substance: CALCIUM
  15. AZELASTINE [Concomitant]
     Active Substance: AZELASTINE

REACTIONS (13)
  - Cerebrovascular accident [Unknown]
  - Constipation [Unknown]
  - Headache [Unknown]
  - Palpitations [Unknown]
  - Sinus tachycardia [Unknown]
  - Dyspnoea [Not Recovered/Not Resolved]
  - Thermal burn [Unknown]
  - Cough [Unknown]
  - Oropharyngeal pain [Unknown]
  - Eye allergy [Not Recovered/Not Resolved]
  - Dizziness [Unknown]
  - Dyspepsia [Recovered/Resolved]
  - Fatigue [Not Recovered/Not Resolved]
